FAERS Safety Report 12446282 (Version 2)
Quarter: 2016Q4

REPORT INFORMATION
  Report Type: Spontaneous
  Country: US (occurrence: US)
  Receive Date: 20160608
  Receipt Date: 20161103
  Transmission Date: 20170207
  Serious: Yes (Hospitalization)
  Sender: FDA-Public Use
  Company Number: US-ROCHE-1769740

PATIENT
  Sex: Female

DRUGS (57)
  1. BEVACIZUMAB [Suspect]
     Active Substance: BEVACIZUMAB
     Dosage: DAY 1 OF CYCLE 2
     Route: 042
     Dates: start: 20160210
  2. IRINOTECAN [Suspect]
     Active Substance: IRINOTECAN
     Dosage: DAY 1 OF CYCLE 4
     Route: 065
     Dates: start: 20160309
  3. TIPIRACIL HYDROCHLORIDE/TRIFLURIDINE [Suspect]
     Active Substance: TIPIRACIL HYDROCHLORIDE\TRIFLURIDINE
     Indication: PRODUCT USED FOR UNKNOWN INDICATION
     Dosage: DAY 1 OF CYCLE 1?LAST DOSE PRIOR TO SAE: 22/MAY/2016
     Route: 065
     Dates: start: 20160127, end: 20160129
  4. OXYCODONE [Concomitant]
     Active Substance: OXYCODONE
     Indication: BACK PAIN
     Route: 065
     Dates: start: 20151202
  5. POTASSIUM CHLORIDE. [Concomitant]
     Active Substance: POTASSIUM CHLORIDE
     Route: 065
     Dates: start: 20160524, end: 20160524
  6. BEVACIZUMAB [Suspect]
     Active Substance: BEVACIZUMAB
     Dosage: DAY 1 OF CYCLE 3
     Route: 042
     Dates: start: 20160225
  7. BEVACIZUMAB [Suspect]
     Active Substance: BEVACIZUMAB
     Dosage: DAY 1 OF CYCLE 10
     Route: 042
     Dates: start: 20160607
  8. BEVACIZUMAB [Suspect]
     Active Substance: BEVACIZUMAB
     Dosage: DAY 1 OF CYCLE 11
     Route: 042
     Dates: start: 20160621
  9. IRINOTECAN [Suspect]
     Active Substance: IRINOTECAN
     Indication: PRODUCT USED FOR UNKNOWN INDICATION
     Dosage: DAY 1 OF CYCLE 1?LAST DOSE PRIOR TO SAE: 22/MAY/2016
     Route: 065
     Dates: start: 20160127
  10. IRINOTECAN [Suspect]
     Active Substance: IRINOTECAN
     Dosage: DAY 1 OF CYCLE 5
     Route: 065
     Dates: start: 20160323
  11. TIPIRACIL HYDROCHLORIDE/TRIFLURIDINE [Suspect]
     Active Substance: TIPIRACIL HYDROCHLORIDE\TRIFLURIDINE
     Dosage: DAY 1 OF CYCLE 3
     Route: 065
     Dates: start: 20160225, end: 20160229
  12. TIPIRACIL HYDROCHLORIDE/TRIFLURIDINE [Suspect]
     Active Substance: TIPIRACIL HYDROCHLORIDE\TRIFLURIDINE
     Dosage: DAY 1 OF CYCLE 7
     Route: 065
     Dates: start: 20160420, end: 20160424
  13. FOSAPREPITANT [Concomitant]
     Active Substance: FOSAPREPITANT
     Indication: NAUSEA
     Route: 065
     Dates: start: 20160210
  14. ENOXAPARIN [Concomitant]
     Active Substance: ENOXAPARIN
     Indication: PROPHYLAXIS
     Route: 065
     Dates: start: 20160420
  15. PANTOPRAZOLE [Concomitant]
     Active Substance: PANTOPRAZOLE SODIUM
     Indication: GASTROOESOPHAGEAL REFLUX DISEASE
  16. BEVACIZUMAB [Suspect]
     Active Substance: BEVACIZUMAB
     Dosage: DAY 1 OF CYCLE 4
     Route: 042
     Dates: start: 20160309
  17. IRINOTECAN [Suspect]
     Active Substance: IRINOTECAN
     Dosage: DAY 1 OF CYCLE 2
     Route: 065
     Dates: start: 20160210
  18. TIPIRACIL HYDROCHLORIDE/TRIFLURIDINE [Suspect]
     Active Substance: TIPIRACIL HYDROCHLORIDE\TRIFLURIDINE
     Dosage: DAY 1 OF CYCLE 8
     Route: 065
     Dates: start: 20160504, end: 20160508
  19. PROMETHAZINE [Concomitant]
     Active Substance: PROMETHAZINE\PROMETHAZINE HYDROCHLORIDE
     Indication: NAUSEA
     Route: 065
     Dates: start: 20160201, end: 20160627
  20. PROMETHAZINE [Concomitant]
     Active Substance: PROMETHAZINE\PROMETHAZINE HYDROCHLORIDE
     Indication: VOMITING
  21. HUMULIN N [Concomitant]
     Active Substance: INSULIN HUMAN
     Indication: TYPE 2 DIABETES MELLITUS
     Route: 065
     Dates: start: 20000101
  22. CODEINE/GUAIFENESIN [Concomitant]
     Active Substance: CODEINE\GUAIFENESIN
     Indication: COUGH
     Route: 048
     Dates: start: 20160114, end: 20160621
  23. EMLA [Concomitant]
     Active Substance: LIDOCAINE\PRILOCAINE
     Route: 065
     Dates: start: 20150730
  24. FLUTICASONE [Concomitant]
     Active Substance: FLUTICASONE\FLUTICASONE PROPIONATE
     Indication: COUGH
     Route: 065
     Dates: start: 20160310
  25. HYDROMORPHONE [Concomitant]
     Active Substance: HYDROMORPHONE
     Indication: BACK PAIN
     Route: 065
     Dates: start: 20160524, end: 20160525
  26. TIPIRACIL HYDROCHLORIDE/TRIFLURIDINE [Suspect]
     Active Substance: TIPIRACIL HYDROCHLORIDE\TRIFLURIDINE
     Dosage: DAY 1 OF CYCLE 5
     Route: 065
     Dates: start: 20160323, end: 20160327
  27. TIPIRACIL HYDROCHLORIDE/TRIFLURIDINE [Suspect]
     Active Substance: TIPIRACIL HYDROCHLORIDE\TRIFLURIDINE
     Dosage: DAY 1 OF CYCLE 11
     Route: 065
     Dates: start: 20160621, end: 20160625
  28. HUMULIN R [Concomitant]
     Active Substance: INSULIN HUMAN
     Indication: TYPE 2 DIABETES MELLITUS
     Route: 065
     Dates: start: 20000101
  29. ENOXAPARIN [Concomitant]
     Active Substance: ENOXAPARIN
     Indication: THROMBOSIS
  30. IRINOTECAN [Suspect]
     Active Substance: IRINOTECAN
     Dosage: DAY 1 OF CYCLE 8
     Route: 065
     Dates: start: 20160504
  31. IRINOTECAN [Suspect]
     Active Substance: IRINOTECAN
     Dosage: DAY 1 OF CYCLE 9
     Route: 065
     Dates: start: 20160518
  32. IRINOTECAN [Suspect]
     Active Substance: IRINOTECAN
     Dosage: DAY 1 OF CYCLE 10
     Route: 065
     Dates: start: 20160621
  33. TIPIRACIL HYDROCHLORIDE/TRIFLURIDINE [Suspect]
     Active Substance: TIPIRACIL HYDROCHLORIDE\TRIFLURIDINE
     Dosage: DAY 1 OF CYCLE 2
     Route: 065
     Dates: start: 20160210, end: 20160214
  34. LISINOPRIL. [Concomitant]
     Active Substance: LISINOPRIL
     Indication: HYPERTENSION
     Route: 065
     Dates: start: 20140101
  35. LOMOTIL (UNITED STATES) [Concomitant]
     Indication: DIARRHOEA
     Dosage: 2.5 MG/0.025 MG
     Route: 065
     Dates: start: 20160215
  36. IMODIUM [Concomitant]
     Active Substance: LOPERAMIDE HYDROCHLORIDE
     Indication: DIARRHOEA
     Route: 065
     Dates: start: 20160210
  37. PANTOPRAZOLE [Concomitant]
     Active Substance: PANTOPRAZOLE SODIUM
     Indication: PROPHYLAXIS
     Route: 065
     Dates: start: 20160523, end: 20160524
  38. IRINOTECAN [Suspect]
     Active Substance: IRINOTECAN
     Dosage: DAY 1 OF CYCLE 3
     Route: 065
     Dates: start: 20160225
  39. TIPIRACIL HYDROCHLORIDE/TRIFLURIDINE [Suspect]
     Active Substance: TIPIRACIL HYDROCHLORIDE\TRIFLURIDINE
     Dosage: DAY 1 OF CYCLE 6
     Route: 065
     Dates: start: 20160406, end: 20160410
  40. TIPIRACIL HYDROCHLORIDE/TRIFLURIDINE [Suspect]
     Active Substance: TIPIRACIL HYDROCHLORIDE\TRIFLURIDINE
     Dosage: DAY 1 OF CYCLE 9
     Route: 065
     Dates: start: 20160518, end: 20160522
  41. TIPIRACIL HYDROCHLORIDE/TRIFLURIDINE [Suspect]
     Active Substance: TIPIRACIL HYDROCHLORIDE\TRIFLURIDINE
     Dosage: DAY 1 OF CYCLE 10
     Route: 065
     Dates: start: 20160607, end: 20160611
  42. APIXABAN [Concomitant]
     Active Substance: APIXABAN
     Indication: PULMONARY EMBOLISM
     Route: 065
     Dates: start: 20160331
  43. OXYGEN. [Concomitant]
     Active Substance: OXYGEN
     Indication: PULMONARY EMBOLISM
     Route: 065
     Dates: start: 20160331
  44. CEFTRIAXONE. [Concomitant]
     Active Substance: CEFTRIAXONE
     Indication: INFECTION
     Route: 065
     Dates: start: 20160523, end: 20160524
  45. BEVACIZUMAB [Suspect]
     Active Substance: BEVACIZUMAB
     Indication: PRODUCT USED FOR UNKNOWN INDICATION
     Dosage: DAY 1 OF CYCLE 1?LAST DOSE PRIOR TO SAE: 22/MAY/2016
     Route: 042
     Dates: start: 20160127
  46. BEVACIZUMAB [Suspect]
     Active Substance: BEVACIZUMAB
     Dosage: DAY 1 OF CYCLE 5
     Route: 042
     Dates: start: 20160323
  47. BEVACIZUMAB [Suspect]
     Active Substance: BEVACIZUMAB
     Dosage: DAY 1 OF CYCLE 7
     Route: 042
     Dates: start: 20160420
  48. BEVACIZUMAB [Suspect]
     Active Substance: BEVACIZUMAB
     Dosage: DAY 1 OF CYCLE 8
     Route: 042
     Dates: start: 20160504
  49. BEVACIZUMAB [Suspect]
     Active Substance: BEVACIZUMAB
     Dosage: DAY 1 OF CYCLE 9
     Route: 042
     Dates: start: 20160518
  50. TIPIRACIL HYDROCHLORIDE/TRIFLURIDINE [Suspect]
     Active Substance: TIPIRACIL HYDROCHLORIDE\TRIFLURIDINE
     Dosage: DAY 1 OF CYCLE 4
     Route: 065
     Dates: start: 20160309, end: 20160313
  51. TYLENOL [Concomitant]
     Active Substance: ACETAMINOPHEN
     Indication: BACK PAIN
     Route: 065
     Dates: start: 20160210, end: 20160627
  52. IRINOTECAN [Suspect]
     Active Substance: IRINOTECAN
     Dosage: DAY 1 OF CYCLE 6
     Route: 065
     Dates: start: 20160406
  53. IRINOTECAN [Suspect]
     Active Substance: IRINOTECAN
     Dosage: DAY 1 OF CYCLE 7
     Route: 065
     Dates: start: 20160420
  54. IRINOTECAN [Suspect]
     Active Substance: IRINOTECAN
     Dosage: DAY 1 OF CYCLE 10
     Route: 065
     Dates: start: 20160607
  55. ZOFRAN [Concomitant]
     Active Substance: ONDANSETRON HYDROCHLORIDE
     Indication: NAUSEA
     Route: 065
     Dates: start: 20160127, end: 20160627
  56. DECADRON [Concomitant]
     Active Substance: DEXAMETHASONE
     Indication: NAUSEA
     Route: 065
     Dates: start: 20160203
  57. OXYCODONE ER [Concomitant]
     Active Substance: OXYCODONE
     Indication: BACK PAIN
     Route: 065
     Dates: start: 20160504

REACTIONS (1)
  - Diabetic ketoacidosis [Recovered/Resolved]

NARRATIVE: CASE EVENT DATE: 20160523
